FAERS Safety Report 5725204-7 (Version None)
Quarter: 2008Q2

REPORT INFORMATION
  Report Type: 
  Country: None (occurrence: None)
  Receive Date: 20080501
  Receipt Date: 20080423
  Transmission Date: 20081010
  Serious: Yes (Hospitalization)
  Sender: FDA-Public Use
  Company Number: B0492632A

PATIENT
  Age: 70 Year
  Sex: Female
  Weight: 75 kg

DRUGS (3)
  1. GW572016 [Suspect]
     Dosage: 1500MG PER DAY
     Route: 048
     Dates: start: 20051025
  2. LETROZOLE [Suspect]
     Dosage: 2.5MG PER DAY
     Route: 048
     Dates: start: 20051025
  3. TAMOXIFEN CITRATE [Concomitant]
     Dates: start: 19971201, end: 20050920

REACTIONS (1)
  - UTERINE HAEMORRHAGE [None]
